FAERS Safety Report 9512840 (Version 2)
Quarter: 2014Q1

REPORT INFORMATION
  Report Type: Spontaneous
  Country: US (occurrence: US)
  Receive Date: 20130910
  Receipt Date: 20140115
  Transmission Date: 20141002
  Serious: Yes (Other)
  Sender: FDA-Public Use
  Company Number: US-JNJFOC-20130901153

PATIENT
  Sex: Female
  Weight: 113.4 kg

DRUGS (8)
  1. INVOKANA [Suspect]
     Indication: TYPE 2 DIABETES MELLITUS
     Route: 048
     Dates: start: 201307
  2. NEXIUM [Concomitant]
     Indication: GASTROOESOPHAGEAL REFLUX DISEASE
     Dates: start: 2010
  3. FUROSEMIDE [Concomitant]
     Indication: LYMPHOEDEMA
     Dates: start: 2010
  4. ADVAIR [Concomitant]
     Indication: LUNG DISORDER
     Route: 048
  5. SPIRIVA [Concomitant]
     Indication: LUNG DISORDER
     Route: 048
     Dates: start: 201307
  6. VITAMIN D [Concomitant]
  7. PRO AIR [Concomitant]
     Indication: ASTHMA
     Route: 048
     Dates: start: 2010
  8. ALBUTEROL [Concomitant]
     Indication: ASTHMA
     Route: 048
     Dates: start: 2013

REACTIONS (7)
  - Pneumonia [Unknown]
  - Heart rate increased [Recovered/Resolved]
  - Dehydration [Not Recovered/Not Resolved]
  - Joint crepitation [Not Recovered/Not Resolved]
  - Hair texture abnormal [Not Recovered/Not Resolved]
  - Therapeutic response delayed [Recovered/Resolved]
  - Blood glucose decreased [Not Recovered/Not Resolved]
